FAERS Safety Report 7141451-4 (Version None)
Quarter: 2010Q4

REPORT INFORMATION
  Report Type: 
  Country: None (occurrence: None)
  Receive Date: 20101207
  Receipt Date: 20101130
  Transmission Date: 20110411
  Serious: Yes (Other)
  Sender: FDA-Public Use
  Company Number: US-AMGEN-USASP2010007002

PATIENT

DRUGS (1)
  1. ENBREL [Suspect]
     Indication: PSORIASIS
     Dosage: 50 MG, QWK
     Dates: start: 20000101, end: 20100401

REACTIONS (5)
  - BLOOD TRIGLYCERIDES ABNORMAL [None]
  - DRY SKIN [None]
  - ERYTHEMA [None]
  - SKIN BURNING SENSATION [None]
  - SKIN EXFOLIATION [None]
